FAERS Safety Report 7851941-4 (Version None)
Quarter: 2011Q4

REPORT INFORMATION
  Report Type: 
  Country: None (occurrence: None)
  Receive Date: 20111026
  Receipt Date: 20111013
  Transmission Date: 20120403
  Serious: Yes (Other)
  Sender: FDA-Public Use
  Company Number: GR-ELI_LILLY_AND_COMPANY-GR201110003970

PATIENT
  Age: 20 Year
  Sex: Female
  Weight: 78 kg

DRUGS (2)
  1. FLUOXETINE [Suspect]
     Indication: BULIMIA NERVOSA
     Dosage: 20 MG, BID
     Route: 048
     Dates: start: 20100301
  2. ABILIFY [Concomitant]
     Indication: PSYCHOTIC DISORDER
     Dosage: 10 MG, QD
     Route: 048
     Dates: start: 20100301

REACTIONS (1)
  - WEIGHT INCREASED [None]
